FAERS Safety Report 17521928 (Version 2)
Quarter: 2024Q3

REPORT INFORMATION
  Report Type: Spontaneous
  Country: US (occurrence: US)
  Receive Date: 20200310
  Receipt Date: 20240906
  Transmission Date: 20241016
  Serious: No
  Sender: DOMPE FARMACEUTICI
  Company Number: US-FARMAPROD-201911-1749

PATIENT
  Sex: Female
  Weight: 80.74 kg

DRUGS (45)
  1. OXERVATE [Suspect]
     Active Substance: CENEGERMIN-BKBJ
     Indication: Neurotrophic keratopathy
     Route: 047
     Dates: start: 20191021, end: 20191217
  2. OXERVATE [Suspect]
     Active Substance: CENEGERMIN-BKBJ
     Indication: Hypoaesthesia eye
     Route: 047
     Dates: start: 20230926
  3. OXERVATE [Suspect]
     Active Substance: CENEGERMIN-BKBJ
  4. OXERVATE [Suspect]
     Active Substance: CENEGERMIN-BKBJ
  5. DORZOLAMIDE HYDROCHLORIDE [Concomitant]
     Active Substance: DORZOLAMIDE HYDROCHLORIDE
  6. OFLOXACIN [Concomitant]
     Active Substance: OFLOXACIN
  7. PREDNISOLONE ACETATE [Concomitant]
     Active Substance: PREDNISOLONE ACETATE
  8. ESCITALOPRAM OXALATE [Concomitant]
     Active Substance: ESCITALOPRAM OXALATE
  9. MELOXICAM [Concomitant]
     Active Substance: MELOXICAM
  10. ALBUTEROL SULFATE [Concomitant]
     Active Substance: ALBUTEROL SULFATE
     Dosage: HYDROFLUOROALKANE, AEROSOL WITH ADAPTER
  11. TRADJENTA [Concomitant]
     Active Substance: LINAGLIPTIN
  12. ASPIRIN [Concomitant]
     Active Substance: ASPIRIN
  13. JARDIANCE [Concomitant]
     Active Substance: EMPAGLIFLOZIN
  14. FLUTICASONE PROPIONATE HFA [Concomitant]
     Active Substance: FLUTICASONE PROPIONATE
  15. NYSTATIN [Concomitant]
     Active Substance: NYSTATIN
  16. OZEMPIC [Concomitant]
     Active Substance: SEMAGLUTIDE
     Dosage: 2 MG / 0.75 ML PEN INJECTOR
  17. GABAPENTIN [Concomitant]
     Active Substance: GABAPENTIN
  18. LINZESS [Concomitant]
     Active Substance: LINACLOTIDE
  19. CLOPIDOGREL [Concomitant]
     Active Substance: CLOPIDOGREL BISULFATE
  20. DOXAZOSIN MESYLATE [Concomitant]
     Active Substance: DOXAZOSIN MESYLATE
  21. TRULANCE [Concomitant]
     Active Substance: PLECANATIDE
  22. FAMOTIDINE [Concomitant]
     Active Substance: FAMOTIDINE
  23. REPATHA [Concomitant]
     Active Substance: EVOLOCUMAB
     Dosage: 420 MG / 3.5 WEAR INJECTION
  24. LOSARTAN POTASSIUM [Concomitant]
     Active Substance: LOSARTAN POTASSIUM
  25. ATORVASTATIN CALCIUM [Concomitant]
     Active Substance: ATORVASTATIN CALCIUM
  26. CHLORTHALIDONE [Concomitant]
     Active Substance: CHLORTHALIDONE
  27. METOPROLOL SUCCINATE [Concomitant]
     Active Substance: METOPROLOL SUCCINATE
  28. NIFEDIPINE [Concomitant]
     Active Substance: NIFEDIPINE
  29. BRIMONIDINE TARTRATE-TIMOLOL [Concomitant]
  30. PRALUENT [Concomitant]
     Active Substance: ALIROCUMAB
     Dosage: PEN
  31. ALLOPURINOL [Concomitant]
     Active Substance: ALLOPURINOL
  32. NITROFURANTOIN MONOHYDRATE MACROCRYSTALS [Concomitant]
     Active Substance: NITROFURANTOIN\NITROFURANTOIN MONOHYDRATE
  33. OMEPRAZOLE [Concomitant]
     Active Substance: OMEPRAZOLE
  34. FUROSEMIDE [Concomitant]
     Active Substance: FUROSEMIDE
  35. FLUCONAZOLE [Concomitant]
     Active Substance: FLUCONAZOLE
  36. ONDANSETRON HYDROCHLORIDE [Concomitant]
     Active Substance: ONDANSETRON HYDROCHLORIDE
  37. LEVOFLOXACIN [Concomitant]
     Active Substance: LEVOFLOXACIN
  38. FERROUS SULFATE [Concomitant]
     Active Substance: FERROUS SULFATE
     Dosage: 325 (65) MG
  39. INSULIN GLARGINE [Concomitant]
     Active Substance: INSULIN GLARGINE
     Dosage: VIAL
  40. HYDROCHLOROTHIAZIDE [Concomitant]
     Active Substance: HYDROCHLOROTHIAZIDE
  41. METFORMIN HYDROCHLORIDE [Concomitant]
     Active Substance: METFORMIN HYDROCHLORIDE
  42. COLACE [Concomitant]
     Active Substance: DOCUSATE SODIUM
  43. NORVASC [Concomitant]
     Active Substance: AMLODIPINE BESYLATE
  44. ESOMEPRAZOLE MAGNESIUM [Concomitant]
     Active Substance: ESOMEPRAZOLE MAGNESIUM
  45. IVIZIA [Concomitant]
     Active Substance: POVIDONE

REACTIONS (3)
  - Treatment noncompliance [Unknown]
  - Intentional product misuse [Unknown]
  - Eye pain [Recovered/Resolved]
